FAERS Safety Report 5108182-3 (Version None)
Quarter: 2006Q3

REPORT INFORMATION
  Report Type: 
  Country: None (occurrence: None)
  Receive Date: 20060915
  Receipt Date: 20060907
  Transmission Date: 20061208
  Serious: Yes (Hospitalization)
  Sender: FDA-Public Use
  Company Number: 229677

PATIENT
  Age: 45 Year
  Sex: Female
  Weight: 93.9 kg

DRUGS (5)
  1. XOLAIR [Suspect]
     Indication: DRUG USE FOR UNKNOWN INDICATION
     Dosage: 375 , Q2W
     Dates: start: 20060906
  2. TYLENOL (CAPLET) [Concomitant]
  3. SINGULAIR [Concomitant]
  4. ASMANEX TWISTHALER [Concomitant]
  5. XOPENEX [Concomitant]

REACTIONS (11)
  - DYSGEUSIA [None]
  - EAR PRURITUS [None]
  - EPISTAXIS [None]
  - ERYTHEMA [None]
  - EYE PRURITUS [None]
  - FLUSHING [None]
  - HEADACHE [None]
  - HYPOAESTHESIA ORAL [None]
  - LACRIMATION INCREASED [None]
  - NASAL CONGESTION [None]
  - PERIORBITAL OEDEMA [None]
